FAERS Safety Report 4918233-4 (Version None)
Quarter: 2006Q1

REPORT INFORMATION
  Report Type: 
  Country: None (occurrence: None)
  Receive Date: 20060215
  Receipt Date: 20060130
  Transmission Date: 20060701
  Serious: Yes (Hospitalization)
  Sender: FDA-Public Use
  Company Number: 2092

PATIENT
  Age: 56 Year
  Sex: Male

DRUGS (1)
  1. TARGRETIN [Suspect]
     Indication: ACUTE MYELOID LEUKAEMIA
     Dosage: 150 MG/M^2 DAILY PO
     Route: 048
     Dates: start: 20050427, end: 20050602

REACTIONS (12)
  - COUGH [None]
  - DYSPNOEA [None]
  - DYSPNOEA EXERTIONAL [None]
  - EYE HAEMORRHAGE [None]
  - HYPOXIA [None]
  - OEDEMA [None]
  - PERICARDIAL EFFUSION [None]
  - PLATELET COUNT DECREASED [None]
  - RETINOIC ACID SYNDROME [None]
  - VISUAL FIELD DEFECT [None]
  - WEIGHT INCREASED [None]
  - WHITE BLOOD CELL COUNT INCREASED [None]
